FAERS Safety Report 11155009 (Version 3)
Quarter: 2015Q2

REPORT INFORMATION
  Report Type: Report from Study
  Country: AR (occurrence: AR)
  Receive Date: 20150602
  Receipt Date: 20150616
  Transmission Date: 20150821
  Serious: Yes (Other)
  Sender: FDA-Public Use
  Company Number: PHHY2015AR056268

PATIENT
  Sex: Male

DRUGS (10)
  1. TEGRETOL [Suspect]
     Active Substance: CARBAMAZEPINE
     Indication: EPILEPSY
     Dosage: UNK
     Route: 048
     Dates: start: 1993, end: 1998
  2. CLONAZEPAM. [Concomitant]
     Active Substance: CLONAZEPAM
     Indication: PRODUCT USED FOR UNKNOWN INDICATION
     Route: 065
  3. TRILEPTAL [Suspect]
     Active Substance: OXCARBAZEPINE
     Indication: EPILEPSY
     Dosage: 300 MG, TID
     Route: 048
     Dates: start: 1998, end: 2007
  4. TEGASEROD [Suspect]
     Active Substance: TEGASEROD
     Indication: IRRITABLE BOWEL SYNDROME
     Dosage: UNK
     Route: 065
     Dates: start: 2006, end: 2007
  5. TETANOL [Suspect]
     Active Substance: CLOSTRIDIUM TETANI TOXOID ANTIGEN (FORMALDEHYDE INACTIVATED)
     Indication: PROPHYLAXIS
     Dosage: UNK
     Route: 065
     Dates: start: 2012, end: 2013
  6. LEVETIRACETAM. [Concomitant]
     Active Substance: LEVETIRACETAM
     Indication: EPILEPSY
     Dosage: 500 MG, UNK
     Route: 065
  7. ALPRAZOLAM. [Concomitant]
     Active Substance: ALPRAZOLAM
     Indication: PRODUCT USED FOR UNKNOWN INDICATION
     Route: 065
  8. CARVEDILOL. [Concomitant]
     Active Substance: CARVEDILOL
     Indication: PRODUCT USED FOR UNKNOWN INDICATION
     Dosage: 100 MG, QD
     Route: 065
  9. TRILEPTAL [Suspect]
     Active Substance: OXCARBAZEPINE
     Dosage: 600 MG, TID
     Route: 048
     Dates: start: 1998, end: 2007
  10. ROSUVASTATIN [Concomitant]
     Active Substance: ROSUVASTATIN
     Indication: BLOOD CHOLESTEROL ABNORMAL
     Dosage: 3 DF, (PER WEEK)
     Route: 065

REACTIONS (3)
  - Hypertension [Recovering/Resolving]
  - Laceration [Unknown]
  - Off label use [Unknown]

NARRATIVE: CASE EVENT DATE: 2006
